FAERS Safety Report 15600988 (Version 1)
Quarter: 2018Q4

REPORT INFORMATION
  Report Type: Spontaneous
  Country: US (occurrence: US)
  Receive Date: 20181108
  Receipt Date: 20181108
  Transmission Date: 20190205
  Serious: Yes (Other)
  Sender: FDA-Public Use
  Company Number: None

PATIENT
  Age: 31 Year
  Sex: Male
  Weight: 83.25 kg

DRUGS (5)
  1. CYCLOPHOSPHAMIDE. [Suspect]
     Active Substance: CYCLOPHOSPHAMIDE
     Indication: HODGKIN^S DISEASE
     Route: 041
     Dates: start: 20180926, end: 20181108
  2. RITUXAN [Concomitant]
     Active Substance: RITUXIMAB
  3. VINCRISTINE [Concomitant]
     Active Substance: VINCRISTINE
  4. DOXORUBICIN [Concomitant]
     Active Substance: DOXORUBICIN
  5. EMEND [Suspect]
     Active Substance: APREPITANT
     Route: 041
     Dates: start: 20180926, end: 20181108

REACTIONS (1)
  - Disease progression [None]
